FAERS Safety Report 8171615-2 (Version None)
Quarter: 2012Q1

REPORT INFORMATION
  Report Type: 
  Country: None (occurrence: None)
  Receive Date: 20120228
  Receipt Date: 20120222
  Transmission Date: 20120608
  Serious: Yes (Other)
  Sender: FDA-Public Use
  Company Number: GB-ABBOTT-12P-167-0907561-00

PATIENT
  Age: 12 Year
  Sex: Female

DRUGS (3)
  1. VALPROATE SODIUM [Suspect]
     Indication: EPILEPSY
  2. VALPROATE SODIUM [Suspect]
     Indication: CEREBRAL PALSY
  3. VALPROATE SODIUM [Suspect]
     Indication: LEARNING DISABILITY

REACTIONS (8)
  - GLYCOSURIA [None]
  - HYPOPHOSPHATAEMIA [None]
  - FANCONI SYNDROME [None]
  - RENAL FAILURE [None]
  - DEHYDRATION [None]
  - URINARY TRACT INFECTION [None]
  - AMINOACIDURIA [None]
  - URINE PHOSPHORUS INCREASED [None]
